FAERS Safety Report 10376368 (Version 1)
Quarter: 2014Q3

REPORT INFORMATION
  Report Type: Spontaneous
  Country: FR (occurrence: FR)
  Receive Date: 20140811
  Receipt Date: 20140811
  Transmission Date: 20150326
  Serious: Yes (Hospitalization)
  Sender: FDA-Public Use
  Company Number: FR-BRISTOL-MYERS SQUIBB COMPANY-21286315

PATIENT
  Age: 84 Year
  Sex: Female
  Weight: 70 kg

DRUGS (8)
  1. COUMADINE [Suspect]
     Active Substance: WARFARIN SODIUM
     Indication: HIP ARTHROPLASTY
     Route: 048
     Dates: start: 201403, end: 20140609
  2. TARDYFERON [Concomitant]
     Active Substance: FERROUS SULFATE\FOLIC ACID
  3. SIMVASTATIN. [Concomitant]
     Active Substance: SIMVASTATIN
  4. KARDEGIC [Suspect]
     Active Substance: ASPIRIN LYSINE
  5. LEVOTHYROX [Concomitant]
     Active Substance: LEVOTHYROXINE
  6. DIFFU-K [Concomitant]
     Active Substance: POTASSIUM CHLORIDE
  7. EZETROL [Concomitant]
     Active Substance: EZETIMIBE
  8. AMLODIPINE [Concomitant]
     Active Substance: AMLODIPINE BESYLATE

REACTIONS (2)
  - Renal failure [Unknown]
  - Subdural haematoma [Recovered/Resolved with Sequelae]

NARRATIVE: CASE EVENT DATE: 20140609
